FAERS Safety Report 8433783-4 (Version None)
Quarter: 2012Q2

REPORT INFORMATION
  Report Type: 
  Country: None (occurrence: None)
  Receive Date: 20120613
  Receipt Date: 20120604
  Transmission Date: 20120825
  Serious: Yes (Hospitalization)
  Sender: FDA-Public Use
  Company Number: NL-TEVA-310538ISR

PATIENT
  Sex: Female

DRUGS (6)
  1. OXALIPLATIN [Suspect]
     Indication: COLORECTAL CANCER
     Dosage: 234 MILLIGRAM;
     Route: 042
     Dates: start: 20110927, end: 20111018
  2. XELODA [Concomitant]
     Route: 048
  3. TEMAZEPAM [Concomitant]
     Dosage: 10 MILLIGRAM;
     Route: 048
  4. URSOCHOL [Concomitant]
     Dosage: 900 MILLIGRAM;
     Route: 048
  5. AMITRIPTYLINE HCL [Concomitant]
     Dosage: 30 MILLIGRAM;
     Route: 048
  6. OXALIPLATIN [Suspect]
     Dosage: 175 MILLIGRAM;
     Route: 042
     Dates: start: 20111107, end: 20111107

REACTIONS (7)
  - MUSCLE SPASMS [None]
  - TREMOR [None]
  - HYPERVENTILATION [None]
  - DYSPNOEA [None]
  - COORDINATION ABNORMAL [None]
  - GAIT DISTURBANCE [None]
  - SPEECH DISORDER [None]
